FAERS Safety Report 6075861-3 (Version None)
Quarter: 2009Q1

REPORT INFORMATION
  Report Type: 
  Country: None (occurrence: None)
  Receive Date: 20090212
  Receipt Date: 20090204
  Transmission Date: 20090719
  Serious: Yes (Other)
  Sender: FDA-Public Use
  Company Number: US-CELGENEUS-163-20785-07030307

PATIENT
  Sex: Male

DRUGS (4)
  1. THALOMID [Suspect]
     Route: 048
     Dates: start: 20070109, end: 20070201
  2. THALOMID [Suspect]
     Route: 048
     Dates: start: 20070419, end: 20070401
  3. THALOMID [Suspect]
     Route: 048
     Dates: start: 20070724, end: 20070801
  4. THALOMID [Suspect]
     Route: 048
     Dates: start: 20070926, end: 20071001

REACTIONS (4)
  - HEARING IMPAIRED [None]
  - HERPES ZOSTER [None]
  - HYPOAESTHESIA [None]
  - SEPSIS [None]
